FAERS Safety Report 13659558 (Version 1)
Quarter: 2017Q2

REPORT INFORMATION
  Report Type: Spontaneous
  Country: NL (occurrence: NL)
  Receive Date: 20170616
  Receipt Date: 20170616
  Transmission Date: 20170830
  Serious: Yes (Other)
  Sender: FDA-Public Use
  Company Number: NL-TEVA-777515ACC

PATIENT
  Age: 4 Year
  Sex: Male
  Weight: 20 kg

DRUGS (8)
  1. AZITROMYCINE [Concomitant]
     Dosage: 200 MILLIGRAM DAILY; 200MG PER DAY
     Route: 048
     Dates: start: 20170516
  2. DEXAMETHASON [Concomitant]
     Active Substance: DEXAMETHASONE
     Route: 048
     Dates: start: 20170221
  3. FRAXIPARINE INJVLST 9500IE/ML WWSP 0,3ML [Concomitant]
     Route: 048
     Dates: start: 20170516
  4. COTRIMOXAZOL  96 INFOPL CONC 16/80MG/ML [Concomitant]
     Route: 048
     Dates: start: 20170519
  5. VANCOMYCINE PDR V INFVLST 1000MG [Concomitant]
     Dosage: 1250MG
     Route: 042
     Dates: start: 20170519
  6. MELATONINE CAPSULE  1MG [Concomitant]
     Dosage: 1MG
     Route: 048
     Dates: start: 20170516
  7. MICONAZOL CREME 20MG/G [Concomitant]
     Route: 003
     Dates: start: 20170502
  8. METHOTREXAAT INJVLST 2,5MG/ML [Suspect]
     Active Substance: METHOTREXATE
     Indication: ACUTE LYMPHOCYTIC LEUKAEMIA
     Dosage: 1 TIME PER WEEK 1 INJECTION
     Route: 042
     Dates: start: 20160621

REACTIONS (1)
  - Epilepsy [Recovered/Resolved]

NARRATIVE: CASE EVENT DATE: 20170522
